FAERS Safety Report 12513459 (Version 1)
Quarter: 2016Q2

REPORT INFORMATION
  Report Type: Spontaneous
  Country: US (occurrence: None)
  Receive Date: 20160629
  Receipt Date: 20160629
  Transmission Date: 20160815
  Serious: Yes (Hospitalization)
  Sender: FDA-Public Use
  Company Number: None

PATIENT
  Age: 58 Year
  Sex: Female
  Weight: 68.5 kg

DRUGS (1)
  1. MEMANTINE HYDROCHLORIDE. [Suspect]
     Active Substance: MEMANTINE HYDROCHLORIDE
     Dates: end: 20160131

REACTIONS (10)
  - Dehydration [None]
  - Constipation [None]
  - Hypotension [None]
  - Decreased appetite [None]
  - Fatigue [None]
  - Heart rate increased [None]
  - Hypophagia [None]
  - Foreign body [None]
  - Dry mouth [None]
  - Asthenia [None]

NARRATIVE: CASE EVENT DATE: 20160201
